FAERS Safety Report 18128316 (Version 2)
Quarter: 2020Q3

REPORT INFORMATION
  Report Type: Report from Study
  Country: MX (occurrence: MX)
  Receive Date: 20200810
  Receipt Date: 20200824
  Transmission Date: 20201103
  Serious: Yes (Other)
  Sender: FDA-Public Use
  Company Number: NVSC2020MX220750

PATIENT
  Sex: Male
  Weight: 98 kg

DRUGS (1)
  1. EXFORGE [Suspect]
     Active Substance: AMLODIPINE BESYLATE\VALSARTAN
     Indication: HYPERTENSION
     Dosage: 1 DF, QD
     Route: 048
     Dates: start: 20200704, end: 20200707

REACTIONS (11)
  - Haemorrhage [Not Recovered/Not Resolved]
  - Nausea [Recovering/Resolving]
  - Fracture [Not Recovered/Not Resolved]
  - Peripheral swelling [Recovering/Resolving]
  - Renal disorder [Unknown]
  - Irritability [Unknown]
  - Headache [Recovering/Resolving]
  - Nerve injury [Not Recovered/Not Resolved]
  - Ocular hyperaemia [Not Recovered/Not Resolved]
  - Blood pressure increased [Recovering/Resolving]
  - Feeling abnormal [Recovering/Resolving]
